FAERS Safety Report 18059054 (Version 1)
Quarter: 2020Q3

REPORT INFORMATION
  Report Type: Spontaneous
  Country: US (occurrence: US)
  Receive Date: 20200723
  Receipt Date: 20200723
  Transmission Date: 20201103
  Serious: No
  Sender: FDA-Public Use
  Company Number: US-SA-2020SA190988

PATIENT

DRUGS (9)
  1. MUCINEX [Concomitant]
     Active Substance: GUAIFENESIN
  2. AUBAGIO [Suspect]
     Active Substance: TERIFLUNOMIDE
     Indication: MULTIPLE SCLEROSIS
     Dosage: 7 MG, QD
     Route: 048
     Dates: start: 20190314
  3. LOSARTAN/HIDROCLOROTIAZIDA [Concomitant]
  4. ADVIL [IBUPROFEN] [Concomitant]
     Active Substance: IBUPROFEN
  5. VITAMIN B12 [Concomitant]
     Active Substance: CYANOCOBALAMIN
  6. VITAMIN D3 [Concomitant]
     Active Substance: CHOLECALCIFEROL
  7. BACLOFEN. [Concomitant]
     Active Substance: BACLOFEN
  8. REMERON [Concomitant]
     Active Substance: MIRTAZAPINE
  9. VERAPAMIL [Concomitant]
     Active Substance: VERAPAMIL HYDROCHLORIDE

REACTIONS (2)
  - Muscular weakness [Unknown]
  - Fall [Unknown]
